FAERS Safety Report 12280113 (Version 1)
Quarter: 2016Q2

REPORT INFORMATION
  Report Type: Spontaneous
  Country: FR (occurrence: FR)
  Receive Date: 20160419
  Receipt Date: 20160419
  Transmission Date: 20160815
  Serious: Yes (Hospitalization)
  Sender: FDA-Public Use
  Company Number: FR-ACCORD-039683

PATIENT
  Age: 61 Year
  Sex: Male

DRUGS (10)
  1. CISPLATIN. [Suspect]
     Active Substance: CISPLATIN
     Indication: OESOPHAGEAL SQUAMOUS CELL CARCINOMA
     Dosage: 4 COURSES LV5FU2
     Route: 042
     Dates: start: 20151006, end: 20151216
  2. NOVORAPID [Concomitant]
     Active Substance: INSULIN ASPART
     Indication: TYPE 2 DIABETES MELLITUS
     Route: 051
  3. IRINOTECAN [Concomitant]
     Active Substance: IRINOTECAN
     Indication: OESOPHAGEAL SQUAMOUS CELL CARCINOMA
     Dosage: 2 COURSES FOLFIRI
     Route: 042
     Dates: start: 20151231, end: 20160202
  4. PARACETAMOL [Concomitant]
     Active Substance: ACETAMINOPHEN
     Indication: PAIN
     Dosage: IF NEEDED
  5. LEVOFOLINATE [Concomitant]
     Active Substance: LEVOLEUCOVORIN CALCIUM
     Indication: PROPHYLAXIS
     Dosage: 4 COURSES LV5FU 2 + 2 COURSES FOLFIRI
     Route: 042
     Dates: start: 20151006, end: 20160202
  6. KARDEGIC [Concomitant]
     Active Substance: ASPIRIN LYSINE
     Indication: PROPHYLAXIS
     Route: 048
  7. MYSOLINE [Concomitant]
     Active Substance: PRIMIDONE
     Indication: ESSENTIAL TREMOR
     Dosage: SCORED TABLET, 250 MG
     Route: 048
  8. OLIMEL [Concomitant]
     Active Substance: AMINO ACIDS\DEXTROSE\SOYBEAN OIL
     Indication: PARENTERAL NUTRITION
     Route: 051
     Dates: start: 201510
  9. MORPHINE [Concomitant]
     Active Substance: MORPHINE
     Indication: PAIN
     Dosage: IF NEEDED
     Route: 042
  10. FLUOROURACIL ACCORD [Suspect]
     Active Substance: FLUOROURACIL
     Indication: OESOPHAGEAL SQUAMOUS CELL CARCINOMA
     Dosage: STRENGTH: 50 MG/ML?4 COURSES LV5FU2 + 2 COURSES FOLFIRI
     Route: 042
     Dates: start: 20151006, end: 20160202

REACTIONS (3)
  - Staphylococcal infection [Unknown]
  - Enterococcal infection [Unknown]
  - Klebsiella sepsis [Recovered/Resolved]

NARRATIVE: CASE EVENT DATE: 20151123
